FAERS Safety Report 5242738-2 (Version None)
Quarter: 2007Q1

REPORT INFORMATION
  Report Type: 
  Country: None (occurrence: None)
  Receive Date: 20070221
  Receipt Date: 20070219
  Transmission Date: 20070707
  Serious: Yes (Other)
  Sender: FDA-Public Use
  Company Number: DE-GLAXOSMITHKLINE-D0052338A

PATIENT
  Age: 68 Year
  Sex: Female

DRUGS (2)
  1. AVANDAMET [Suspect]
     Route: 065
     Dates: start: 20050906, end: 20061007
  2. OLMETEC [Concomitant]
     Indication: HYPERTENSION
     Dosage: 40MG PER DAY
     Route: 065
     Dates: start: 20050101

REACTIONS (1)
  - DYSPNOEA EXERTIONAL [None]
